FAERS Safety Report 10387747 (Version 2)
Quarter: 2015Q3

REPORT INFORMATION
  Report Type: Spontaneous
  Country: US (occurrence: US)
  Receive Date: 20140815
  Receipt Date: 20150817
  Transmission Date: 20151125
  Serious: No
  Sender: FDA-Public Use
  Company Number: US-GILEAD-2014-0111827

PATIENT
  Age: 67 Year
  Sex: Male

DRUGS (1)
  1. LETAIRIS [Suspect]
     Active Substance: AMBRISENTAN
     Indication: PRODUCT USED FOR UNKNOWN INDICATION
     Dosage: 5 MG, QD
     Route: 065
     Dates: start: 20140722

REACTIONS (5)
  - Abdominal distension [Unknown]
  - Sinus congestion [Unknown]
  - Dyspnoea [Unknown]
  - Oxygen supplementation [Unknown]
  - Oedema [Unknown]

NARRATIVE: CASE EVENT DATE: 20140722
